FAERS Safety Report 9183839 (Version 1)
Quarter: 2012Q4

REPORT INFORMATION
  Report Type: 
  Country: JP (occurrence: JP)
  Receive Date: 20121030
  Receipt Date: 20121030
  Transmission Date: 20130627
  Serious: Yes (Congenital Anomaly)
  Sender: FDA-Public Use
  Company Number: JP-JNJFOC-20121015729

PATIENT
  Sex: Female
  Weight: 2.9 kg

DRUGS (2)
  1. DUROTEP MT [Suspect]
     Indication: FOETAL EXPOSURE DURING PREGNANCY
     Route: 064
  2. TOPIRAMATE [Suspect]
     Indication: FOETAL EXPOSURE DURING PREGNANCY
     Route: 048

REACTIONS (2)
  - Ventricular septal defect [Unknown]
  - Trisomy 21 [Unknown]
